FAERS Safety Report 4599967-0 (Version None)
Quarter: 2005Q1

REPORT INFORMATION
  Report Type: 
  Country: None (occurrence: None)
  Receive Date: 20050303
  Receipt Date: 20050218
  Transmission Date: 20050727
  Serious: Yes (Life-Threatening, Hospitalization)
  Sender: FDA-Public Use
  Company Number: FABR-10792

PATIENT
  Age: 39 Year
  Sex: Male

DRUGS (1)
  1. FABRAZYME [Suspect]
     Indication: FABRY'S DISEASE

REACTIONS (9)
  - ANOXIC ENCEPHALOPATHY [None]
  - CARDIAC ARREST [None]
  - CARDIOMEGALY [None]
  - CIRCULATORY COLLAPSE [None]
  - COMA [None]
  - IMPAIRED GASTRIC EMPTYING [None]
  - MEDICATION ERROR [None]
  - NAUSEA [None]
  - VENTRICULAR FIBRILLATION [None]
